FAERS Safety Report 14928260 (Version 3)
Quarter: 2019Q1

REPORT INFORMATION
  Report Type: Spontaneous
  Country: US (occurrence: US)
  Receive Date: 20180523
  Receipt Date: 20190318
  Transmission Date: 20190417
  Serious: Yes (Life-Threatening, Hospitalization, Other)
  Sender: FDA-Public Use
  Company Number: US-AUROBINDO-AUR-APL-2018-026484

PATIENT

DRUGS (6)
  1. RISPERIDONE. [Suspect]
     Active Substance: RISPERIDONE
     Indication: SCHIZOPHRENIA
     Dosage: 2 MILLIGRAM IN THE MORNING
     Route: 048
  2. RISPERIDONE. [Interacting]
     Active Substance: RISPERIDONE
     Indication: ACUTE PSYCHOSIS
     Dosage: 3 MILLIGRAM EVENING
     Route: 048
  3. PALIPERIDONE PALMITATE [Suspect]
     Active Substance: PALIPERIDONE PALMITATE
     Indication: ACUTE PSYCHOSIS
     Dosage: 156 MILLIGRAM
     Route: 030
  4. BENZTROPINE. [Interacting]
     Active Substance: BENZTROPINE
     Indication: SCHIZOPHRENIA
     Dosage: 2 MILLIGRAM, TWO TIMES A DAY
     Route: 048
  5. PALIPERIDONE PALMITATE [Suspect]
     Active Substance: PALIPERIDONE PALMITATE
     Indication: SCHIZOPHRENIA
     Dosage: 234 MILLIGRAM
     Route: 030
  6. BENZTROPINE. [Interacting]
     Active Substance: BENZTROPINE
     Indication: ACUTE PSYCHOSIS

REACTIONS (5)
  - Autonomic nervous system imbalance [Not Recovered/Not Resolved]
  - Supraventricular extrasystoles [Unknown]
  - Sinus tachycardia [Not Recovered/Not Resolved]
  - Drug interaction [Not Recovered/Not Resolved]
  - Condition aggravated [Not Recovered/Not Resolved]
